FAERS Safety Report 14890908 (Version 1)
Quarter: 2018Q2

REPORT INFORMATION
  Report Type: Spontaneous
  Country: US (occurrence: US)
  Receive Date: 20180514
  Receipt Date: 20180514
  Transmission Date: 20180711
  Serious: No
  Sender: FDA-Public Use
  Company Number: US-BAUSCH-BL-2018-005005

PATIENT
  Sex: Female

DRUGS (1)
  1. RELISTOR [Suspect]
     Active Substance: METHYLNALTREXONE BROMIDE
     Indication: PRODUCT USE IN UNAPPROVED INDICATION
     Route: 065

REACTIONS (2)
  - Erythema [Unknown]
  - Flushing [Unknown]
